FAERS Safety Report 15918943 (Version 2)
Quarter: 2019Q1

REPORT INFORMATION
  Report Type: Spontaneous
  Country: IT (occurrence: IT)
  Receive Date: 20190205
  Receipt Date: 20190221
  Transmission Date: 20190417
  Serious: Yes (Other)
  Sender: FDA-Public Use
  Company Number: IT-PFIZER INC-2019052699

PATIENT
  Age: 41 Year
  Sex: Female
  Weight: 65 kg

DRUGS (5)
  1. DOCETAXEL. [Suspect]
     Active Substance: DOCETAXEL
     Indication: ADENOCARCINOMA GASTRIC
     Dosage: 89 MG, CYCLIC
     Route: 042
     Dates: start: 20180514
  2. LEVOLEUCOVORIN [LEVOFOLINIC ACID] [Concomitant]
     Indication: ADENOCARCINOMA GASTRIC
     Dosage: 356 MG, UNK
     Route: 042
     Dates: start: 20180514, end: 20181112
  3. FLUOROURACIL. [Concomitant]
     Active Substance: FLUOROURACIL
     Indication: ADENOCARCINOMA GASTRIC
     Dosage: 4272 MG, UNK
     Dates: start: 20180514, end: 20181112
  4. FLUOROURACIL. [Concomitant]
     Active Substance: FLUOROURACIL
     Dosage: 712 MG, CYCLIC
     Route: 040
     Dates: start: 20180514, end: 20180514
  5. OXALIPLATIN. [Concomitant]
     Active Substance: OXALIPLATIN
     Indication: ADENOCARCINOMA GASTRIC
     Dosage: 150 MG, UNK
     Route: 042
     Dates: start: 20180514, end: 20181112

REACTIONS (5)
  - Erythema [Recovering/Resolving]
  - Bronchostenosis [Recovering/Resolving]
  - Dyspnoea [Recovering/Resolving]
  - Feeling hot [Recovering/Resolving]
  - Malaise [Recovering/Resolving]

NARRATIVE: CASE EVENT DATE: 20180514
